FAERS Safety Report 21862900 (Version 3)
Quarter: 2023Q1

REPORT INFORMATION
  Report Type: Spontaneous
  Country: US (occurrence: US)
  Receive Date: 20230114
  Receipt Date: 20230213
  Transmission Date: 20230418
  Serious: No
  Sender: FDA-Public Use
  Company Number: US-002147023-NVSC2023US008070

PATIENT
  Age: 41 Year
  Sex: Female

DRUGS (2)
  1. COMBIPATCH [Suspect]
     Active Substance: ESTRADIOL\NORETHINDRONE ACETATE
     Indication: Hormone replacement therapy
     Dosage: 0.05/0.25 MG, 1 PATCH IN EVERY 3-4 DAYS
     Route: 062
  2. COMBIPATCH [Suspect]
     Active Substance: ESTRADIOL\NORETHINDRONE ACETATE
     Indication: Off label use
     Dosage: 0.05/0.25 MG (SECOND BOX)
     Route: 062

REACTIONS (7)
  - Tremor [Not Recovered/Not Resolved]
  - Headache [Not Recovered/Not Resolved]
  - Product adhesion issue [Not Recovered/Not Resolved]
  - Wrong technique in product usage process [Not Recovered/Not Resolved]
  - Product storage error [Not Recovered/Not Resolved]
  - Intentional product use issue [Recovered/Resolved]
  - Off label use [Not Recovered/Not Resolved]

NARRATIVE: CASE EVENT DATE: 20230109
